FAERS Safety Report 5714327-4 (Version None)
Quarter: 2008Q2

REPORT INFORMATION
  Report Type: 
  Country: None (occurrence: None)
  Receive Date: 20080421
  Receipt Date: 20080407
  Transmission Date: 20081010
  Serious: Yes (Hospitalization)
  Sender: FDA-Public Use
  Company Number: CIP08000369

PATIENT
  Age: 69 Year
  Sex: Female

DRUGS (14)
  1. RISEDRONATE SODIUM [Suspect]
     Indication: OSTEOPOROSIS
     Dosage: 2.5 MG DAILY, ORAL
     Route: 048
     Dates: start: 20050225, end: 20070918
  2. DIAZEPAM [Concomitant]
  3. LIPOVAS /00848101/ (SIMVASTATIN) [Concomitant]
  4. ISOSORBIDE DINITRATE [Concomitant]
  5. MAGMITT (MAGNESIUM OXIDE) [Concomitant]
  6. ZOLPIDEM TARTRATE [Concomitant]
  7. NORVASC [Concomitant]
  8. METHYCOBAL /00324901/ (MECOBALAMIN) [Concomitant]
  9. ASPIRIN [Concomitant]
  10. PREDONINE /00016201/ (PREDNISOLONE) [Concomitant]
  11. FLUCAM (AMPIROXICAM) [Concomitant]
  12. SALIGREN (CEVIMELINE HYDROCHLORIDE) [Concomitant]
  13. REUMATHREX /00113801/ (METHOTREXATE) [Concomitant]
  14. ZESULAN (MEQUITAZINE) [Concomitant]

REACTIONS (14)
  - BRAIN ABSCESS [None]
  - CELLULITIS [None]
  - GLYCOSYLATED HAEMOGLOBIN INCREASED [None]
  - ORAL DISCOMFORT [None]
  - ORAL DISORDER [None]
  - OSTEOMYELITIS [None]
  - OTITIS MEDIA [None]
  - PAIN [None]
  - PAIN IN JAW [None]
  - POST PROCEDURAL INFECTION [None]
  - RED BLOOD CELL COUNT DECREASED [None]
  - SWELLING FACE [None]
  - TOOTH EXTRACTION [None]
  - TRISMUS [None]
